FAERS Safety Report 15058740 (Version 1)
Quarter: 2018Q2

REPORT INFORMATION
  Report Type: Spontaneous
  Country: US (occurrence: US)
  Receive Date: 20180625
  Receipt Date: 20180625
  Transmission Date: 20180711
  Serious: No
  Sender: FDA-Public Use
  Company Number: US-BAYER-2018-119053

PATIENT
  Age: 78 Year
  Sex: Male
  Weight: 83.99 kg

DRUGS (1)
  1. MIRALAX [Suspect]
     Active Substance: POLYETHYLENE GLYCOL 3350
     Route: 048

REACTIONS (3)
  - Therapeutic product ineffective [Unknown]
  - Expired product administered [Unknown]
  - Underdose [Unknown]
